FAERS Safety Report 9183408 (Version 1)
Quarter: 2013Q1

REPORT INFORMATION
  Report Type: Report from Study
  Country: JP (occurrence: JP)
  Receive Date: 20130322
  Receipt Date: 20130322
  Transmission Date: 20140127
  Serious: Yes (Life-Threatening, Disabling)
  Sender: FDA-Public Use
  Company Number: JP-BRISTOL-MYERS SQUIBB COMPANY-14563555

PATIENT
  Age: 64 Year
  Sex: Female
  Weight: 50 kg

DRUGS (5)
  1. ERBITUX SOLN FOR INF 5MG/ML [Suspect]
     Indication: COLON CANCER
     Dosage: 1STINF:550MG(20JAN)?2NDINF:3FEB09 340MG?24FEB09:5TH +LAST INF?10FEB09 TO 03MAR09(350 MG 1/1WK IV)
     Route: 041
     Dates: start: 20090120, end: 20090120
  2. TOPOTECIN [Suspect]
     Indication: COLORECTAL CANCER RECURRENT
     Dosage: LAST INF-10FEB TO 24FEB09 210MG; 14DAYS?210MG, 1 IN 2 WK IV
     Route: 041
     Dates: start: 20090120, end: 20090120
  3. POLARAMINE [Concomitant]
     Indication: PREMEDICATION
     Dosage: 10 MG, 1 IN 1WK, IV, 20JAN09-24FEB09
     Route: 041
     Dates: start: 20090120, end: 20090303
  4. DECADRON [Concomitant]
     Indication: PREMEDICATION
     Dosage: 8MG, 1 IN 1WK, IV, 20JAN09-24FEB09
     Route: 041
     Dates: start: 20090120, end: 20090303
  5. KYTRIL [Concomitant]
     Indication: ANTIEMETIC SUPPORTIVE CARE
     Route: 042
     Dates: start: 20090120, end: 20090303

REACTIONS (4)
  - Hyperkalaemia [Not Recovered/Not Resolved]
  - Duodenal ulcer perforation [Not Recovered/Not Resolved]
  - Renal impairment [Not Recovered/Not Resolved]
  - Acne [Not Recovered/Not Resolved]
